FAERS Safety Report 5726449-2 (Version None)
Quarter: 2008Q2

REPORT INFORMATION
  Report Type: 
  Country: None (occurrence: None)
  Receive Date: 20080502
  Receipt Date: 20080423
  Transmission Date: 20081010
  Serious: Yes (Life-Threatening, Hospitalization)
  Sender: FDA-Public Use
  Company Number: B0517856A

PATIENT
  Age: 79 Year
  Sex: Male

DRUGS (8)
  1. ARIXTRA [Suspect]
     Indication: DRUG USE FOR UNKNOWN INDICATION
     Dosage: 7.5MG PER DAY
     Route: 058
     Dates: start: 20080226, end: 20080306
  2. EQUANIL [Concomitant]
     Dosage: 250MG AT NIGHT
     Route: 048
  3. SPIRONOLACTONE [Concomitant]
     Dosage: 75MG IN THE MORNING
     Route: 048
  4. HEMIGOXINE [Concomitant]
     Dosage: 1TAB PER DAY
     Route: 048
  5. TAMSULOSIN HCL [Concomitant]
     Dosage: .4MG AT NIGHT
     Route: 048
  6. NEO-MERCAZOLE TAB [Concomitant]
     Route: 065
  7. TOPALGIC ( FRANCE ) [Concomitant]
     Dosage: 100MG TWICE PER DAY
     Route: 048
     Dates: start: 20080309
  8. PREVISCAN [Concomitant]
     Route: 065
     Dates: end: 20080226

REACTIONS (4)
  - ANAEMIA [None]
  - HAEMATOMA [None]
  - PROTHROMBIN LEVEL ABNORMAL [None]
  - RESPIRATORY FAILURE [None]
